FAERS Safety Report 7782302-4 (Version None)
Quarter: 2011Q3

REPORT INFORMATION
  Report Type: 
  Country: None (occurrence: None)
  Receive Date: 20110927
  Receipt Date: 20110914
  Transmission Date: 20111222
  Serious: Yes (Hospitalization)
  Sender: FDA-Public Use
  Company Number: HU-ELI_LILLY_AND_COMPANY-HU201108000182

PATIENT
  Age: 37 Year
  Sex: Female

DRUGS (3)
  1. PAROXETINE HCL [Concomitant]
     Dosage: 20 MG, UNKNOWN
  2. CLONAZEPAM [Concomitant]
     Dosage: 0.5 MG, UNKNOWN
  3. OLANZAPINE [Suspect]
     Indication: SCHIZOPHRENIA
     Dosage: 300 MG, MONTHLY (1/M)
     Route: 030
     Dates: start: 20110201

REACTIONS (3)
  - ANXIETY [None]
  - HYPERHIDROSIS [None]
  - SOMNOLENCE [None]
